FAERS Safety Report 24195005 (Version 2)
Quarter: 2024Q3

REPORT INFORMATION
  Report Type: Spontaneous
  Country: JP (occurrence: JP)
  Receive Date: 20240809
  Receipt Date: 20240829
  Transmission Date: 20241017
  Serious: Yes (Hospitalization, Disabling, Other)
  Sender: PFIZER
  Company Number: JP-PFIZER INC-PV202400103626

PATIENT
  Age: 80 Year
  Sex: Female
  Weight: 48.3 kg

DRUGS (12)
  1. PAXLOVID [Suspect]
     Active Substance: NIRMATRELVIR\RITONAVIR
     Indication: COVID-19 treatment
     Dosage: [NIRMATRELVIR 300 MG]/[RITONAVIR 100 MG]; 2X/DAY
     Route: 048
     Dates: start: 20240716, end: 20240720
  2. EDOXABAN TOSYLATE [Concomitant]
     Active Substance: EDOXABAN TOSYLATE
     Dosage: 30 MG, 1X/DAY
  3. NEXIUM [Concomitant]
     Active Substance: ESOMEPRAZOLE MAGNESIUM
     Dosage: 10 MG, 1X/DAY
  4. NIFEDIPINE [Concomitant]
     Active Substance: NIFEDIPINE
     Dosage: 40 MG, 1X/DAY
  5. CANDESARTAN [Concomitant]
     Active Substance: CANDESARTAN
     Dosage: 8 MG, 1X/DAY
  6. PRAVASTATIN SODIUM [Concomitant]
     Active Substance: PRAVASTATIN SODIUM
     Dosage: 10 MG, 1X/DAY
  7. LEVOCETIRIZINE HYDROCHLORIDE [Concomitant]
     Active Substance: LEVOCETIRIZINE HYDROCHLORIDE
     Dosage: 5 MG, 1X/DAY
  8. ELDECALCITOL [Concomitant]
     Active Substance: ELDECALCITOL
     Dosage: 0.75 UG, 1X/DAY
  9. DOTINURAD [Concomitant]
     Active Substance: DOTINURAD
     Dosage: 1 MG, 1X/DAY
  10. MAGNESIUM OXIDE [Concomitant]
     Active Substance: MAGNESIUM OXIDE
     Dosage: 330 MG, 2X/DAY (SELF-MANAGEMENT)
  11. HUMALOG [Concomitant]
     Active Substance: INSULIN LISPRO
     Dosage: 10 UNK, 2X/DAY, IN THE MORNING AND EVENING
  12. LANTUS SOLOSTAR [Concomitant]
     Active Substance: INSULIN GLARGINE
     Dosage: 6 UNK, 1X/DAY, BEFORE BEDTIME

REACTIONS (1)
  - Acute kidney injury [Recovered/Resolved with Sequelae]

NARRATIVE: CASE EVENT DATE: 20240722
